FAERS Safety Report 4582157-5 (Version None)
Quarter: 2005Q1

REPORT INFORMATION
  Report Type: 
  Country: None (occurrence: None)
  Receive Date: 20050119
  Receipt Date: 20040220
  Transmission Date: 20050727
  Serious: Yes (Hospitalization)
  Sender: FDA-Public Use
  Company Number: A03200400516

PATIENT
  Age: 77 Year
  Sex: Male
  Weight: 96.1626 kg

DRUGS (9)
  1. PLAVIX [Suspect]
     Indication: STENT PLACEMENT
     Dosage: 75 MG QD - ORAL
     Route: 048
     Dates: start: 20040117, end: 20040120
  2. ASPIRIN [Suspect]
     Indication: STENT PLACEMENT
     Dosage: 325 MG QD - ORAL
     Route: 048
     Dates: start: 20040117, end: 20040120
  3. RADIOACTIVE IODINE SOLUTION - SOLUTION - UNIT DOSE : UNKNOWN [Suspect]
     Indication: CATHETERISATION CARDIAC
     Dosage: INTRAVENOUS NOS
     Route: 042
     Dates: start: 20040117, end: 20040117
  4. WARFARIN SODIUM [Concomitant]
  5. FOSINOPRIL SODIUM [Concomitant]
  6. METOPROLOL [Concomitant]
  7. PRAVASTATIN SODIUM [Concomitant]
  8. RABEPRAZOLE SODIUM [Concomitant]
  9. FENOFIBRATE [Concomitant]

REACTIONS (2)
  - CHEST DISCOMFORT [None]
  - RASH MACULAR [None]
